FAERS Safety Report 7177201-5 (Version None)
Quarter: 2010Q4

REPORT INFORMATION
  Report Type: 
  Country: None (occurrence: None)
  Receive Date: 20101220
  Receipt Date: 20101208
  Transmission Date: 20110411
  Serious: Yes (Other)
  Sender: FDA-Public Use
  Company Number: US-ROCHE-727261

PATIENT
  Sex: Male
  Weight: 86.2 kg

DRUGS (3)
  1. ACCUTANE [Suspect]
     Indication: ACNE
     Route: 065
     Dates: start: 19970101
  2. ACCUTANE [Suspect]
     Route: 065
     Dates: start: 20070601, end: 20070901
  3. ACCUTANE [Suspect]
     Route: 065
     Dates: start: 20070901, end: 20071101

REACTIONS (3)
  - COLITIS ULCERATIVE [None]
  - GASTROINTESTINAL INJURY [None]
  - SACROILIITIS [None]
